FAERS Safety Report 7075582-4 (Version None)
Quarter: 2010Q4

REPORT INFORMATION
  Report Type: 
  Country: None (occurrence: None)
  Receive Date: 20101030
  Receipt Date: 20101011
  Transmission Date: 20110411
  Serious: No
  Sender: FDA-Public Use
  Company Number: US-WYE-H18156810

PATIENT
  Sex: Female

DRUGS (2)
  1. PRISTIQ [Suspect]
     Dates: start: 20100101
  2. ALPRAZOLAM [Concomitant]

REACTIONS (3)
  - DEPRESSED LEVEL OF CONSCIOUSNESS [None]
  - FATIGUE [None]
  - FEELING ABNORMAL [None]
